FAERS Safety Report 10010058 (Version 1)
Quarter: 2014Q1

REPORT INFORMATION
  Report Type: Spontaneous
  Country: US (occurrence: US)
  Receive Date: 20140312
  Receipt Date: 20140312
  Transmission Date: 20141002
  Serious: No
  Sender: FDA-Public Use
  Company Number: US-INCYTE CORPORATION-2013IN001052

PATIENT
  Age: 67 Year
  Sex: Male

DRUGS (11)
  1. JAKAFI [Suspect]
     Dosage: 20 MG, BID
     Route: 048
  2. TERAZOSIN [Concomitant]
  3. CENTRUM [Concomitant]
  4. FLONASE [Concomitant]
  5. XALATAN [Concomitant]
  6. TRAZODONE [Concomitant]
  7. SIMVASTATIN [Concomitant]
  8. ASPIRIN [Concomitant]
  9. VITAMIN B COMPLEX [Concomitant]
  10. METOPROLOL [Concomitant]
  11. CETIRIZINE [Concomitant]

REACTIONS (3)
  - Dyspepsia [Unknown]
  - Oesophageal pain [Unknown]
  - Insomnia [Unknown]
